FAERS Safety Report 15476643 (Version 2)
Quarter: 2018Q4

REPORT INFORMATION
  Report Type: Spontaneous
  Country: PA (occurrence: PA)
  Receive Date: 20181009
  Receipt Date: 20181012
  Transmission Date: 20190205
  Serious: Yes (Death, Hospitalization, Other)
  Sender: FDA-Public Use
  Company Number: PA-ASTRAZENECA-2018SF29905

PATIENT
  Age: 61 Year
  Sex: Male
  Weight: 118 kg

DRUGS (11)
  1. FISH OIL [Concomitant]
     Active Substance: FISH OIL
  2. FUROSEMIDE. [Concomitant]
     Active Substance: FUROSEMIDE
     Dosage: 40 MG: 1/2 TAB QD
  3. COLLAGEN [Concomitant]
     Active Substance: COLLAGEN
  4. DIGOXINA [Concomitant]
     Active Substance: DIGOXIN
  5. FORXIGA [Suspect]
     Active Substance: DAPAGLIFLOZIN
     Indication: TYPE 2 DIABETES MELLITUS
     Route: 048
     Dates: start: 201705
  6. GLICAZIDE [Concomitant]
     Active Substance: GLICLAZIDE
  7. CENTRUM [Concomitant]
     Active Substance: VITAMINS
     Dosage: 1 TAB QD
  8. EXFORGE [Concomitant]
     Active Substance: AMLODIPINE BESYLATE\VALSARTAN
     Dosage: 10/160 MG QD
  9. CARDIOASPIRIN (ASPIRIN) [Concomitant]
     Dosage: DAILY
  10. XIGDUO XR [Suspect]
     Active Substance: DAPAGLIFLOZIN PROPANEDIOL\METFORMIN HYDROCHLORIDE
     Indication: TYPE 2 DIABETES MELLITUS
     Dosage: 5/1000MG BID
     Route: 048
     Dates: start: 201710
  11. CENTRUM [Concomitant]
     Active Substance: VITAMINS

REACTIONS (2)
  - Fournier^s gangrene [Fatal]
  - Off label use [Unknown]

NARRATIVE: CASE EVENT DATE: 201804
